FAERS Safety Report 4269142-8 (Version None)
Quarter: 2004Q1

REPORT INFORMATION
  Report Type: 
  Country: None (occurrence: None)
  Receive Date: 20040109
  Receipt Date: 20031222
  Transmission Date: 20041129
  Serious: Yes (Death)
  Sender: FDA-Public Use
  Company Number: KDL029910

PATIENT
  Age: 85 Year
  Sex: Female
  Weight: 58.6 kg

DRUGS (10)
  1. PROCRIT [Suspect]
     Indication: RENAL FAILURE CHRONIC
     Dosage: 3000 U, TWICE WEEKLY, SC
     Route: 058
     Dates: start: 20020601
  2. SERTRALINE HCL [Concomitant]
  3. ESTROGENS CONJUGATED [Concomitant]
  4. LISINOPRIL [Concomitant]
  5. POTASSIUM [Concomitant]
  6. RISEDRONATE SODIUM [Concomitant]
  7. PRAVASTATIN SODIUM [Concomitant]
  8. ENSURE [Concomitant]
  9. CIPROFLOXACIN [Concomitant]
  10. AMOXICILLIN [Concomitant]

REACTIONS (4)
  - BACTERIAL INFECTION [None]
  - CEREBROVASCULAR ACCIDENT [None]
  - DISEASE RECURRENCE [None]
  - PSEUDOMONAS INFECTION [None]
